FAERS Safety Report 23728136 (Version 1)
Quarter: 2024Q2

REPORT INFORMATION
  Report Type: Spontaneous
  Country: CA (occurrence: CA)
  Receive Date: 20240410
  Receipt Date: 20240410
  Transmission Date: 20240715
  Serious: Yes (Death, Hospitalization, Other)
  Sender: FDA-Public Use
  Company Number: CA-FreseniusKabi-FK202405730

PATIENT
  Age: 73 Year
  Sex: Male

DRUGS (5)
  1. HEPARIN SODIUM [Suspect]
     Active Substance: HEPARIN SODIUM
     Indication: Product used for unknown indication
     Dosage: DOSAGE FORM: SOLUTION INTRAVENOUS?ROUTE OF ADMIN: UNKNOWN
  2. ACETAMINOPHEN [Concomitant]
     Active Substance: ACETAMINOPHEN
     Indication: Hypertension
  3. METOPROLOL [Concomitant]
     Active Substance: METOPROLOL
     Indication: Hypertension
     Dosage: EVERY 1 DAYS
  4. CANDESARTAN [Concomitant]
     Active Substance: CANDESARTAN
     Indication: Hypertension
     Dosage: EVERY 1 DAYS
  5. ASPIRIN [Concomitant]
     Active Substance: ASPIRIN
     Indication: Hypertension
     Dosage: EVERY 1 DAYS?TABLET (DELAYED RELEASE)

REACTIONS (23)
  - Acute kidney injury [Fatal]
  - Asthenia [Fatal]
  - Bone marrow disorder [Fatal]
  - Cerebral haemorrhage [Fatal]
  - Cerebrovascular accident [Fatal]
  - Cough [Fatal]
  - Discomfort [Fatal]
  - Feeling cold [Fatal]
  - Haemoglobin decreased [Fatal]
  - Haemoptysis [Fatal]
  - Hemiplegia [Fatal]
  - Heparin-induced thrombocytopenia [Fatal]
  - Hypersomnia [Fatal]
  - Inflammation [Fatal]
  - Malaise [Fatal]
  - Mobility decreased [Fatal]
  - Pain [Fatal]
  - Petechiae [Fatal]
  - Pneumonia [Fatal]
  - Presyncope [Fatal]
  - Pyrexia [Fatal]
  - Somnolence [Fatal]
  - Thrombosis [Fatal]
